FAERS Safety Report 14733690 (Version 2)
Quarter: 2018Q2

REPORT INFORMATION
  Report Type: Spontaneous
  Country: US (occurrence: US)
  Receive Date: 20180409
  Receipt Date: 20180507
  Transmission Date: 20180711
  Serious: Yes (Other)
  Sender: FDA-Public Use
  Company Number: US-AUROBINDO-AUR-APL-2018-018761

PATIENT
  Age: 6 Year
  Sex: Male

DRUGS (7)
  1. SIROLIMUS. [Interacting]
     Active Substance: SIROLIMUS
     Dosage: 3.6 MILLIGRAM, DAILY
     Route: 065
  2. SIROLIMUS. [Interacting]
     Active Substance: SIROLIMUS
     Dosage: ON DAY-1; 3 MG/M2/DOSE
     Route: 065
  3. SIROLIMUS. [Interacting]
     Active Substance: SIROLIMUS
     Dosage: 1.8 MILLIGRAM, DAILY (10.5MG/L)
     Route: 065
  4. SIROLIMUS. [Interacting]
     Active Substance: SIROLIMUS
     Dosage: 5.4 MILLIGRAM, DAILY
     Route: 065
  5. SIROLIMUS. [Interacting]
     Active Substance: SIROLIMUS
     Indication: PROPHYLAXIS AGAINST GRAFT VERSUS HOST DISEASE
     Dosage: DAY 0 ONWARDS
     Route: 065
  6. FLUCONAZOLE. [Suspect]
     Active Substance: FLUCONAZOLE
     Indication: PROPHYLAXIS AGAINST GRAFT VERSUS HOST DISEASE
     Dosage: STARTED ON DAY-1; 5 MG/KG/DOSE; STOPPED ON DAY +92
     Route: 065
  7. SIROLIMUS. [Interacting]
     Active Substance: SIROLIMUS
     Dosage: DAY 0 ONWARDS; 1 MG/M2/DOSE
     Route: 065

REACTIONS (2)
  - Drug level increased [Recovered/Resolved]
  - Drug interaction [Unknown]
